FAERS Safety Report 24991585 (Version 3)
Quarter: 2025Q1

REPORT INFORMATION
  Report Type: Report from Study
  Country: JP (occurrence: JP)
  Receive Date: 20250220
  Receipt Date: 20250305
  Transmission Date: 20250408
  Serious: Yes (Hospitalization)
  Sender: ABBVIE
  Company Number: JP-ABBVIE-6141358

PATIENT
  Age: 21 Year
  Sex: Male
  Weight: 86 kg

DRUGS (7)
  1. RISANKIZUMAB [Suspect]
     Active Substance: RISANKIZUMAB
     Indication: Crohn^s disease
     Route: 058
     Dates: start: 20240612
  2. RISANKIZUMAB [Suspect]
     Active Substance: RISANKIZUMAB
     Indication: Crohn^s disease
     Route: 042
     Dates: start: 20240321, end: 20240612
  3. BILASTINE [Concomitant]
     Active Substance: BILASTINE
     Indication: Dermatitis allergic
     Route: 048
     Dates: start: 20240319
  4. HEPARINOID [Concomitant]
     Indication: Dermatitis allergic
     Route: 061
     Dates: start: 20240319
  5. KETOCONAZOLE [Concomitant]
     Active Substance: KETOCONAZOLE
     Indication: Dermatitis allergic
     Dosage: ADEQUATE DOSE APPLICATION
     Route: 061
     Dates: start: 20240713
  6. BIFIDOBACTERIUM SPP. [Concomitant]
     Active Substance: BIFIDOBACTERIUM SPP.
     Indication: Crohn^s disease
     Route: 048
     Dates: start: 20231115
  7. DIFLUCORTOLONE VALERATE [Concomitant]
     Active Substance: DIFLUCORTOLONE VALERATE
     Indication: Dermatitis allergic
     Dosage: UNIVERSAL CREAM,?ADEQUATE DOSE APPLICATION
     Route: 061
     Dates: start: 20240319

REACTIONS (1)
  - Ileal stenosis [Not Recovered/Not Resolved]

NARRATIVE: CASE EVENT DATE: 20250217
